FAERS Safety Report 13562800 (Version 1)
Quarter: 2017Q2

REPORT INFORMATION
  Report Type: Spontaneous
  Country: NL (occurrence: NL)
  Receive Date: 20170519
  Receipt Date: 20170519
  Transmission Date: 20170830
  Serious: Yes (Hospitalization, Other)
  Sender: FDA-Public Use
  Company Number: NL-ASPEN PHARMA TRADING LIMITED US-AG-2017-003472

PATIENT
  Weight: 2.47 kg

DRUGS (6)
  1. 5-ASA [Suspect]
     Active Substance: MESALAMINE
     Indication: PRODUCT USED FOR UNKNOWN INDICATION
     Route: 064
  2. KETANSERIN. [Suspect]
     Active Substance: KETANSERIN
     Indication: PRODUCT USED FOR UNKNOWN INDICATION
     Route: 064
  3. TIOGUANINE [Suspect]
     Active Substance: THIOGUANINE ANHYDROUS
     Indication: PRODUCT USED FOR UNKNOWN INDICATION
     Dosage: MATERNAL TG DOSE: 18 MG/DAY
     Route: 064
  4. ANTI-TNF ALPHA [Suspect]
     Active Substance: UNSPECIFIED INGREDIENT
     Indication: PRODUCT USED FOR UNKNOWN INDICATION
     Route: 064
  5. LABETALOL [Suspect]
     Active Substance: LABETALOL\LABETALOL HYDROCHLORIDE
     Indication: PRODUCT USED FOR UNKNOWN INDICATION
     Route: 064
  6. CORTICOSTEROIDS [Suspect]
     Active Substance: CORTICOSTEROID NOS
     Indication: PRODUCT USED FOR UNKNOWN INDICATION
     Route: 064

REACTIONS (5)
  - Hyperbilirubinaemia [Unknown]
  - Neonatal respiratory distress syndrome [Unknown]
  - Caesarean section [None]
  - Foetal exposure during pregnancy [Unknown]
  - Hypotonia [Unknown]
